APPROVED DRUG PRODUCT: ETOMIDATE
Active Ingredient: ETOMIDATE
Strength: 2MG/ML
Dosage Form/Route: INJECTABLE;INJECTION
Application: A074593 | Product #001 | TE Code: AP
Applicant: HIKMA PHARMACEUTICALS USA INC
Approved: Nov 4, 1996 | RLD: No | RS: No | Type: RX